FAERS Safety Report 6030557-9 (Version None)
Quarter: 2009Q1

REPORT INFORMATION
  Report Type: 
  Country: None (occurrence: None)
  Receive Date: 20090105
  Receipt Date: 20090105
  Transmission Date: 20090719
  Serious: Yes (Hospitalization)
  Sender: FDA-Public Use
  Company Number: None

PATIENT
  Age: 39 Year
  Sex: Female
  Weight: 79.3795 kg

DRUGS (1)
  1. METHYLPREDNISOLONE 4MG TAB [Suspect]
     Indication: URTICARIA
     Dosage: 6, 5, 4, 3, 2, 1 DAILY
     Dates: start: 20081130, end: 20081205

REACTIONS (9)
  - DRUG HYPERSENSITIVITY [None]
  - DYSPHAGIA [None]
  - DYSPNOEA [None]
  - EYE SWELLING [None]
  - LIP SWELLING [None]
  - ORAL PAIN [None]
  - OROPHARYNGEAL PAIN [None]
  - PRODUCT QUALITY ISSUE [None]
  - URTICARIA [None]
